FAERS Safety Report 9611977 (Version 2)
Quarter: 2013Q4

REPORT INFORMATION
  Report Type: Spontaneous
  Country: DE (occurrence: AT)
  Receive Date: 20131010
  Receipt Date: 20131010
  Transmission Date: 20140711
  Serious: Yes (Other)
  Sender: FDA-Public Use
  Company Number: AT-FRI-1000049044

PATIENT
  Age: 76 Year
  Sex: Female

DRUGS (4)
  1. ROFLUMILAST [Suspect]
     Dosage: 500 MCG
     Route: 048
     Dates: start: 20130703
  2. ROFLUMILAST [Suspect]
     Dosage: 250 MCG
     Route: 048
  3. MARCOUMAR [Suspect]
     Dosage: 1 DF
  4. MARCOUMAR [Suspect]
     Dosage: 0.5 DF

REACTIONS (1)
  - Drug interaction [Recovered/Resolved]
